FAERS Safety Report 16330200 (Version 3)
Quarter: 2022Q1

REPORT INFORMATION
  Report Type: Spontaneous
  Country: GB (occurrence: GB)
  Receive Date: 20190520
  Receipt Date: 20220226
  Transmission Date: 20220424
  Serious: Yes (Hospitalization, Other)
  Sender: FDA-Public Use
  Company Number: None

PATIENT
  Age: 80 Year
  Sex: Female
  Weight: 53.5 kg

DRUGS (2)
  1. SIMVASTATIN [Suspect]
     Active Substance: SIMVASTATIN
     Indication: Product used for unknown indication
     Dosage: AT NIGHT
  2. PREDNISOLONE [Suspect]
     Active Substance: PREDNISOLONE
     Indication: Anal prolapse
     Dosage: AT NIGHT.

REACTIONS (3)
  - Night sweats [Unknown]
  - Off label use [Unknown]
  - Dizziness [Not Recovered/Not Resolved]
